FAERS Safety Report 7315262-0 (Version None)
Quarter: 2011Q1

REPORT INFORMATION
  Report Type: 
  Country: None (occurrence: None)
  Receive Date: 20110225
  Receipt Date: 20110221
  Transmission Date: 20110831
  Serious: Yes (Life-Threatening, Hospitalization)
  Sender: FDA-Public Use
  Company Number: US-ROCHE-760330

PATIENT
  Sex: Male

DRUGS (7)
  1. BEVACIZUMAB [Suspect]
     Indication: NON-SMALL CELL LUNG CANCER
     Route: 042
     Dates: start: 20091217, end: 20100128
  2. CARBOPLATIN [Suspect]
     Indication: NON-SMALL CELL LUNG CANCER
     Route: 042
     Dates: start: 20091217, end: 20100128
  3. COMPAZINE [Concomitant]
     Dates: start: 20091217
  4. PHENERGAN [Concomitant]
     Dates: start: 20091217
  5. ROBITUSSIN A-C [Concomitant]
  6. HYDROCODONE BITARTRATE [Concomitant]
     Dates: start: 20100113, end: 20100118
  7. PACLITAXEL [Suspect]
     Indication: NON-SMALL CELL LUNG CANCER
     Route: 042
     Dates: start: 20091217, end: 20100128

REACTIONS (3)
  - PNEUMONIA [None]
  - HYDROPNEUMOTHORAX [None]
  - HAEMOPTYSIS [None]
